FAERS Safety Report 4463738-6 (Version None)
Quarter: 2004Q3

REPORT INFORMATION
  Report Type: 
  Country: None (occurrence: None)
  Receive Date: 20040929
  Receipt Date: 20040909
  Transmission Date: 20050211
  Serious: Yes (Death, Other)
  Sender: FDA-Public Use
  Company Number: GBS040815357

PATIENT
  Age: 64 Year
  Sex: Female
  Weight: 70 kg

DRUGS (9)
  1. XIGRIS [Suspect]
     Indication: STAPHYLOCOCCAL SEPSIS
     Dosage: 1.68 MG/ HR
     Dates: start: 20040724
  2. NORADRENALINE [Concomitant]
  3. POTASSIUM PHOSPHATES [Concomitant]
  4. FLUCLOXACILLIN [Concomitant]
  5. GENTAMYCIN SULFATE [Concomitant]
  6. POTASSIUM CHLORIDE [Concomitant]
  7. METOCLOPRAMIDE [Concomitant]
  8. RIFAMPICIN [Concomitant]
  9. HEPARIN [Concomitant]

REACTIONS (4)
  - ACTIVATED PARTIAL THROMBOPLASTIN TIME PROLONGED [None]
  - CONDITION AGGRAVATED [None]
  - HAEMORRHAGE INTRACRANIAL [None]
  - INTRACRANIAL PRESSURE INCREASED [None]
